FAERS Safety Report 14321989 (Version 1)
Quarter: 2017Q4

REPORT INFORMATION
  Report Type: Report from Study
  Country: JP (occurrence: JP)
  Receive Date: 20171225
  Receipt Date: 20171225
  Transmission Date: 20180321
  Serious: Yes (Other)
  Sender: FDA-Public Use
  Company Number: JP-AMGEN-JPNCT2017190284

PATIENT
  Age: 57 Year
  Sex: Female

DRUGS (1)
  1. DARBEPOETIN ALFA [Suspect]
     Active Substance: DARBEPOETIN ALFA
     Indication: NEPHROGENIC ANAEMIA
     Dosage: UNK
     Route: 042
     Dates: start: 20170220

REACTIONS (10)
  - Oral herpes [Recovered/Resolved]
  - Hypoaesthesia [Recovered/Resolved]
  - Shunt infection [Recovered/Resolved]
  - Stomatitis [Recovered/Resolved]
  - Scratch [Recovered/Resolved]
  - Skin exfoliation [Recovered/Resolved]
  - Petechiae [Unknown]
  - Back pain [Recovered/Resolved]
  - Shunt infection [Unknown]
  - Dermatitis contact [Recovering/Resolving]

NARRATIVE: CASE EVENT DATE: 2017
